FAERS Safety Report 16532217 (Version 1)
Quarter: 2019Q3

REPORT INFORMATION
  Report Type: Spontaneous
  Country: SG (occurrence: SG)
  Receive Date: 20190705
  Receipt Date: 20190705
  Transmission Date: 20191004
  Serious: Yes (Other)
  Sender: FDA-Public Use
  Company Number: IND-SG-009507513-1907SGP001100

PATIENT
  Sex: Female

DRUGS (3)
  1. ARCOXIA [Suspect]
     Active Substance: ETORICOXIB
     Route: 048
  2. GLUCOSAMINE [Suspect]
     Active Substance: GLUCOSAMINE
     Route: 048
  3. SEPTRIN [Suspect]
     Active Substance: SULFAMETHOXAZOLE\TRIMETHOPRIM
     Route: 048

REACTIONS (1)
  - Dermatitis bullous [Unknown]
